FAERS Safety Report 20759514 (Version 1)
Quarter: 2022Q2

REPORT INFORMATION
  Report Type: Spontaneous
  Country: US (occurrence: US)
  Receive Date: 20220427
  Receipt Date: 20220427
  Transmission Date: 20220720
  Serious: No
  Sender: FDA-Public Use
  Company Number: US-BioHaven Pharmaceuticals-2022BHV000578

PATIENT
  Age: 44 Year
  Sex: Male
  Weight: 65.830 kg

DRUGS (1)
  1. NURTEC ODT [Suspect]
     Active Substance: RIMEGEPANT SULFATE
     Indication: Migraine
     Dosage: 1 ODT FOR ACUTE TREATMENT OR PREVENTION OF MIGRAINES
     Route: 048
     Dates: start: 20220218

REACTIONS (7)
  - Therapeutic response delayed [Unknown]
  - Dizziness [Not Recovered/Not Resolved]
  - Sedation [Not Recovered/Not Resolved]
  - Vision blurred [Not Recovered/Not Resolved]
  - Drug ineffective [Not Recovered/Not Resolved]
  - Pain [Not Recovered/Not Resolved]
  - Nausea [Unknown]

NARRATIVE: CASE EVENT DATE: 20220218
